FAERS Safety Report 8888733 (Version 2)
Quarter: 2012Q4

REPORT INFORMATION
  Report Type: 
  Country: JP (occurrence: JP)
  Receive Date: 20121106
  Receipt Date: 20121119
  Transmission Date: 20130627
  Serious: Yes (Hospitalization, Other)
  Sender: FDA-Public Use
  Company Number: JP-BAYER-2012-092335

PATIENT
  Age: 83 Year
  Sex: Female
  Weight: 40 kg

DRUGS (8)
  1. XARELTO [Suspect]
     Indication: ATRIAL FIBRILLATION PAROXYSMAL
     Dosage: 10 mg, QD
     Route: 048
     Dates: start: 20120818, end: 20120827
  2. XARELTO [Suspect]
     Indication: CEREBROVASCULAR ACCIDENT PROPHYLAXIS
  3. BAYASPIRIN [Suspect]
     Dosage: 100 mg, QD
     Route: 048
     Dates: start: 20110707, end: 20120829
  4. MAINTATE [Concomitant]
     Indication: BRADYCARDIA
     Dosage: Daily dose 3.75 mg
     Route: 048
     Dates: start: 20120710, end: 20120910
  5. DIOVAN [Concomitant]
     Dosage: Daily dose 80 mg
     Route: 048
  6. CALBLOCK [Concomitant]
     Dosage: Daily dose 16 mg
     Route: 048
     Dates: start: 20120510
  7. ALINAMIN F [FURSULTIAMINE] [Concomitant]
     Dosage: Daily dose 50 mg
     Route: 048
     Dates: start: 20120801
  8. OMEPRAL [Concomitant]
     Dosage: Daily dose 10 mg
     Route: 048

REACTIONS (5)
  - Pneumonia [Recovering/Resolving]
  - Cardiac failure [Recovering/Resolving]
  - Gingival bleeding [Recovered/Resolved]
  - International normalised ratio increased [None]
  - Activated partial thromboplastin time prolonged [None]
